FAERS Safety Report 23694074 (Version 1)
Quarter: 2024Q2

REPORT INFORMATION
  Report Type: Report from Study
  Country: CA (occurrence: CA)
  Receive Date: 20240401
  Receipt Date: 20240401
  Transmission Date: 20240716
  Serious: Yes (Other)
  Sender: FDA-Public Use
  Company Number: CA-AKCEA THERAPEUTICS, INC.-2024IS002882

PATIENT

DRUGS (14)
  1. TEGSEDI [Suspect]
     Active Substance: INOTERSEN SODIUM
     Indication: Hereditary neuropathic amyloidosis
     Dosage: 284 MG, QW
     Route: 058
  2. TEGSEDI [Suspect]
     Active Substance: INOTERSEN SODIUM
     Dosage: 284 MG, QW
     Route: 058
     Dates: start: 20200421
  3. MIDODRINE [Concomitant]
     Active Substance: MIDODRINE
     Indication: Hypotension
     Dosage: 1 DOSAGE FORM, TID
     Route: 048
     Dates: start: 2020
  4. MIDODRINE [Concomitant]
     Active Substance: MIDODRINE
     Dosage: 2 DOSAGE FORM, BID
     Route: 048
     Dates: start: 2020
  5. MIDODRINE [Concomitant]
     Active Substance: MIDODRINE
     Dosage: 1 DOSAGE FORM, BID
     Route: 048
     Dates: start: 2020
  6. CLARITIN [Concomitant]
     Active Substance: LORATADINE
     Indication: Hypersensitivity
     Dosage: UNK UNK, QD
     Route: 048
  7. C+D VITAMIINI [Concomitant]
     Indication: Supplementation therapy
     Dosage: 1000 MG, QD
     Route: 048
  8. VAGISIL [BENZOCAINE] [Concomitant]
     Indication: Dry skin
     Dosage: UNK UNK, PRN
     Route: 061
  9. VENIXXA [Concomitant]
     Indication: Haemorrhoids
     Dosage: UNK UNK, PRN
     Route: 065
  10. LASIX [Concomitant]
     Active Substance: FUROSEMIDE
     Indication: Hypotension
     Dosage: UNK
     Route: 065
  11. LOPERAMIDE HYDROCHLORIDE [Concomitant]
     Active Substance: LOPERAMIDE HYDROCHLORIDE
     Indication: Diarrhoea
     Dosage: UNK
     Route: 065
  12. EYE DROPS [TETRYZOLINE HYDROCHLORIDE] [Concomitant]
     Indication: Dry eye
     Dosage: UNK UNK, PRN
  13. FOSFOMYCIN [Concomitant]
     Active Substance: FOSFOMYCIN
     Indication: Urinary tract infection
     Dosage: UNK
     Route: 048
     Dates: start: 2012
  14. BENZOCAINE [Concomitant]
     Active Substance: BENZOCAINE
     Indication: Product used for unknown indication
     Dosage: UNK
     Route: 065

REACTIONS (20)
  - Vitamin A decreased [Recovering/Resolving]
  - Carbon dioxide increased [Not Recovered/Not Resolved]
  - Anion gap decreased [Not Recovered/Not Resolved]
  - Lymphocyte count decreased [Recovered/Resolved]
  - Red blood cell count decreased [Not Recovered/Not Resolved]
  - Blood cholesterol increased [Not Recovered/Not Resolved]
  - Low density lipoprotein increased [Recovered/Resolved]
  - Basophil count increased [Recovered/Resolved]
  - Blood triglycerides increased [Not Recovered/Not Resolved]
  - Haematocrit decreased [Unknown]
  - Haemolysis [Unknown]
  - Blood alkaline phosphatase increased [Recovered/Resolved]
  - White blood cells urine positive [Unknown]
  - Blood creatinine decreased [Not Recovered/Not Resolved]
  - Creatinine urine decreased [Not Recovered/Not Resolved]
  - Urine protein/creatinine ratio increased [Not Recovered/Not Resolved]
  - Monocyte count increased [Recovered/Resolved]
  - Red cell distribution width increased [Recovered/Resolved]
  - Haemoglobin decreased [Not Recovered/Not Resolved]
  - Platelet count decreased [Recovered/Resolved]

NARRATIVE: CASE EVENT DATE: 20210112
